FAERS Safety Report 25306502 (Version 1)
Quarter: 2025Q2

REPORT INFORMATION
  Report Type: Spontaneous
  Country: IT (occurrence: IT)
  Receive Date: 20250513
  Receipt Date: 20250513
  Transmission Date: 20250717
  Serious: Yes (Death, Hospitalization)
  Sender: DR REDDYS
  Company Number: None

PATIENT
  Age: 1 Year
  Sex: Female
  Weight: 10 kg

DRUGS (2)
  1. DOXORUBICIN HYDROCHLORIDE [Suspect]
     Active Substance: DOXORUBICIN HYDROCHLORIDE
     Indication: Acute myeloid leukaemia
     Route: 042
     Dates: start: 20250328, end: 20250330
  2. CYTARABINE [Suspect]
     Active Substance: CYTARABINE
     Indication: Acute myeloid leukaemia
     Route: 042
     Dates: start: 20250328, end: 20250403

REACTIONS (5)
  - Pancytopenia [Fatal]
  - Hypernatraemia [Fatal]
  - Electrolyte imbalance [Fatal]
  - Septic shock [Fatal]
  - Pyrexia [Unknown]

NARRATIVE: CASE EVENT DATE: 20250330
